FAERS Safety Report 16214302 (Version 1)
Quarter: 2019Q2

REPORT INFORMATION
  Report Type: Spontaneous
  Country: US (occurrence: US)
  Receive Date: 20190418
  Receipt Date: 20190418
  Transmission Date: 20190711
  Serious: Yes (Other)
  Sender: FDA-Public Use
  Company Number: US-MALLINCKRODT-T201902967

PATIENT
  Sex: Male

DRUGS (1)
  1. H.P. ACTHAR [Suspect]
     Active Substance: CORTICOTROPIN
     Indication: MYOSITIS
     Dosage: UNK
     Route: 058

REACTIONS (5)
  - Myositis [Unknown]
  - Therapy cessation [Unknown]
  - Condition aggravated [Unknown]
  - Abscess limb [Unknown]
  - Immune system disorder [Unknown]
